FAERS Safety Report 14779336 (Version 1)
Quarter: 2018Q2

REPORT INFORMATION
  Report Type: Spontaneous
  Country: JP (occurrence: JP)
  Receive Date: 20180419
  Receipt Date: 20180419
  Transmission Date: 20180711
  Serious: Yes (Other)
  Sender: FDA-Public Use
  Company Number: JP-BAYER-2018-015023

PATIENT
  Age: 43 Year
  Sex: Female

DRUGS (4)
  1. MIRENA [Suspect]
     Active Substance: LEVONORGESTREL
     Indication: MENORRHAGIA
     Dosage: 20 MCG/24HR, CONT
     Route: 015
     Dates: start: 20070706, end: 20080804
  2. MIRENA [Suspect]
     Active Substance: LEVONORGESTREL
     Indication: MENORRHAGIA
     Dosage: UNK UNK, CONT
     Route: 015
     Dates: start: 20070706, end: 20080804
  3. FRANDOL [Concomitant]
     Active Substance: ISOSORBIDE DINITRATE
  4. BAYASPIRIN 100 MG [Concomitant]
     Active Substance: ASPIRIN

REACTIONS (4)
  - Menstruation irregular [None]
  - Endometriosis [Recovering/Resolving]
  - Metrorrhagia [Recovered/Resolved]
  - Hypomenorrhoea [None]

NARRATIVE: CASE EVENT DATE: 20080619
